FAERS Safety Report 21374384 (Version 2)
Quarter: 2022Q4

REPORT INFORMATION
  Report Type: Spontaneous
  Country: DE (occurrence: DE)
  Receive Date: 20220926
  Receipt Date: 20221106
  Transmission Date: 20230113
  Serious: Yes (Hospitalization, Other)
  Sender: FDA-Public Use
  Company Number: DE-NOVARTISPH-NVSC2022DE214807

PATIENT
  Sex: Male

DRUGS (3)
  1. LEQVIO [Suspect]
     Active Substance: INCLISIRAN SODIUM
     Indication: Low density lipoprotein increased
     Dosage: 2 DOSAGE FORM
     Route: 058
     Dates: start: 202108
  2. LEQVIO [Suspect]
     Active Substance: INCLISIRAN SODIUM
     Indication: Vascular stent thrombosis
     Dosage: 2 DOSAGE FORM
     Route: 065
     Dates: start: 202204
  3. TAMSULOSIN [Concomitant]
     Active Substance: TAMSULOSIN
     Indication: Product used for unknown indication
     Dosage: UNK
     Route: 065

REACTIONS (19)
  - Pancreatitis [Recovered/Resolved with Sequelae]
  - Drug ineffective [Recovering/Resolving]
  - Weight decreased [Unknown]
  - C-reactive protein increased [Recovered/Resolved]
  - Blood potassium increased [Recovered/Resolved]
  - Alanine aminotransferase increased [Recovered/Resolved]
  - Lipase increased [Recovering/Resolving]
  - Blood creatinine increased [Recovering/Resolving]
  - Blood uric acid increased [Recovered/Resolved]
  - Blood albumin decreased [Recovered/Resolved]
  - Alpha 1 globulin increased [Recovered/Resolved]
  - Alpha 2 globulin increased [Recovered/Resolved]
  - Beta globulin increased [Recovered/Resolved]
  - Blood triglycerides increased [Unknown]
  - High density lipoprotein decreased [Recovered/Resolved]
  - Haemoglobin increased [Recovering/Resolving]
  - Haematocrit increased [Recovering/Resolving]
  - Red blood cell sedimentation rate increased [Recovered/Resolved]
  - Borrelia test positive [Unknown]

NARRATIVE: CASE EVENT DATE: 20220910
